FAERS Safety Report 5247369-6 (Version None)
Quarter: 2007Q1

REPORT INFORMATION
  Report Type: 
  Country: None (occurrence: None)
  Receive Date: 20070227
  Receipt Date: 20070221
  Transmission Date: 20070707
  Serious: Yes (Hospitalization, Other)
  Sender: FDA-Public Use
  Company Number: JP-BRACCO-BRO-011276

PATIENT
  Age: 60 Year
  Sex: Female
  Weight: 57 kg

DRUGS (2)
  1. IOPAMIRON [Suspect]
     Indication: CALCULUS URINARY
     Route: 042
     Dates: start: 20070206, end: 20070206
  2. IOPAMIRON [Suspect]
     Route: 042
     Dates: start: 20070206, end: 20070206

REACTIONS (5)
  - BLOOD PRESSURE DECREASED [None]
  - PAIN [None]
  - PYREXIA [None]
  - RENAL FAILURE ACUTE [None]
  - SHOCK [None]
